FAERS Safety Report 11881116 (Version 7)
Quarter: 2016Q1

REPORT INFORMATION
  Report Type: Report from Study
  Country: GB (occurrence: GB)
  Receive Date: 20151230
  Receipt Date: 20160209
  Transmission Date: 20160526
  Serious: Yes (Life-Threatening, Hospitalization, Other)
  Sender: FDA-Public Use
  Company Number: GB-AMGEN-GBRNI2015138723

PATIENT
  Age: 12 Year
  Sex: Female

DRUGS (25)
  1. AMBISOME [Concomitant]
     Active Substance: AMPHOTERICIN B
     Dosage: 50 MG, QD
     Route: 042
     Dates: start: 20151111
  2. HYOSCINE [Concomitant]
     Active Substance: SCOPOLAMINE
     Dosage: 1 DF, EVERY 72 HOURS
     Route: 062
     Dates: start: 20151112
  3. PIRITON [Concomitant]
     Active Substance: CHLORPHENIRAMINE MALEATE
     Dosage: 10 MG, AS NECESSARY
     Route: 042
  4. LIGNOCAINE                         /00033401/ [Concomitant]
     Active Substance: LIDOCAINE HYDROCHLORIDE
     Dosage: 1 DF, AS NECESSARY
     Route: 062
     Dates: start: 20151125
  5. AMITRIPTYLINE [Concomitant]
     Active Substance: AMITRIPTYLINE
     Dosage: 20 MG, QD
     Route: 048
     Dates: start: 20151109, end: 201512
  6. VITAMIN K [Concomitant]
     Active Substance: PHYTONADIONE
     Dosage: 10 MG, QD
     Route: 042
  7. ONDANSETRON [Concomitant]
     Active Substance: ONDANSETRON
     Dosage: 8 MG, TID
     Route: 048
  8. PARACETAMOL [Concomitant]
     Active Substance: ACETAMINOPHEN
     Dosage: 665 MG, 4 TIMES A DAY
     Route: 048
     Dates: start: 20151129
  9. HYDROCORTISONE. [Concomitant]
     Active Substance: HYDROCORTISONE
     Dosage: 100 MG, AS NECESSARY
     Route: 042
  10. CLONAZEPAM. [Concomitant]
     Active Substance: CLONAZEPAM
     Dosage: 0.5 MG, UNK
     Route: 048
     Dates: start: 20151225
  11. LANSOPRAZOLE. [Concomitant]
     Active Substance: LANSOPRAZOLE
     Dosage: 30 MG, QD
     Route: 048
     Dates: start: 20151230
  12. MELATONIN [Concomitant]
     Active Substance: MELATONIN
     Dosage: 2 MG, QD
     Route: 048
     Dates: start: 20151226
  13. FENTANYL. [Concomitant]
     Active Substance: FENTANYL
     Dosage: 75 MUG/KG, QH
     Dates: start: 20151128
  14. OMEPRAZOLE. [Concomitant]
     Active Substance: OMEPRAZOLE
     Dosage: 40 MG, QD
     Route: 042
     Dates: start: 20151129, end: 20151230
  15. BUSCOPAN [Concomitant]
     Active Substance: BUTYLSCOPOLAMINE BROMIDE
     Dosage: 10 MG, AS NECESSARY
     Route: 042
     Dates: end: 201512
  16. MERCAPTOPURINE. [Concomitant]
     Active Substance: MERCAPTOPURINE
     Dosage: 100 MG, QD
     Route: 048
     Dates: start: 20151231
  17. COTRIMOXAZOLE [Concomitant]
     Active Substance: SULFAMETHOXAZOLE\TRIMETHOPRIM
     Indication: PROPHYLAXIS
     Dosage: 480 MG, BID
     Route: 048
  18. TRANEXAMIC ACID. [Concomitant]
     Active Substance: TRANEXAMIC ACID
     Dosage: UNK, AS NECESSARY
     Route: 061
     Dates: start: 20151028
  19. BLINATUMOMAB [Suspect]
     Active Substance: BLINATUMOMAB
     Indication: PRODUCT USED FOR UNKNOWN INDICATION
     Dosage: 15 MUG/M2, CONTINUING
     Route: 042
     Dates: start: 20151215
  20. KETAMINE [Concomitant]
     Active Substance: KETAMINE
     Dosage: 25 MG, QD
     Route: 042
     Dates: start: 20151213, end: 20151225
  21. AMILORIDE [Concomitant]
     Active Substance: AMILORIDE
     Dosage: 10 MG, QD
     Route: 048
     Dates: start: 20151204, end: 20151225
  22. OXYCODONE [Concomitant]
     Active Substance: OXYCODONE
     Dosage: 2 MG, AS NECESSARY
     Route: 040
     Dates: start: 20151212, end: 20151225
  23. LORAZEPAM. [Concomitant]
     Active Substance: LORAZEPAM
     Dosage: 0.5 TO 1 MG, AS NECESSARY
     Route: 048
     Dates: start: 20151204
  24. DEXAMETHASONE. [Concomitant]
     Active Substance: DEXAMETHASONE
     Dosage: 8 MG, AS NECESSARY
     Route: 042
     Dates: start: 20151215
  25. CYTARABINE. [Concomitant]
     Active Substance: CYTARABINE
     Dosage: 120 MG, QD
     Route: 042
     Dates: start: 20151231

REACTIONS (4)
  - Hyperglycaemia [Recovered/Resolved]
  - Urinary retention [Recovered/Resolved]
  - Cytokine release syndrome [Recovered/Resolved]
  - Febrile neutropenia [Recovered/Resolved]

NARRATIVE: CASE EVENT DATE: 20151219
